FAERS Safety Report 19403387 (Version 2)
Quarter: 2022Q2

REPORT INFORMATION
  Report Type: Report from Study
  Country: NL (occurrence: NL)
  Receive Date: 20210611
  Receipt Date: 20220407
  Transmission Date: 20220721
  Serious: Yes (Death, Hospitalization)
  Sender: FDA-Public Use
  Company Number: NL-MYLANLABS-2021M1031941

PATIENT

DRUGS (10)
  1. RITUXIMAB [Suspect]
     Active Substance: RITUXIMAB
     Indication: Chemotherapy
     Dosage: MATERNAL CYCLICAL THERAPY
     Route: 064
  2. RITUXIMAB [Suspect]
     Active Substance: RITUXIMAB
     Indication: Diffuse large B-cell lymphoma
  3. CYCLOPHOSPHAMIDE [Suspect]
     Active Substance: CYCLOPHOSPHAMIDE
     Indication: Chemotherapy
     Dosage: MATERNAL CYCLICAL THERAPY
     Route: 064
  4. CYCLOPHOSPHAMIDE [Suspect]
     Active Substance: CYCLOPHOSPHAMIDE
     Indication: Diffuse large B-cell lymphoma
  5. DOXORUBICIN [Suspect]
     Active Substance: DOXORUBICIN
     Indication: Chemotherapy
     Dosage: MATERNAL CYCLICAL THERAPY
     Route: 064
  6. DOXORUBICIN [Suspect]
     Active Substance: DOXORUBICIN
     Indication: Diffuse large B-cell lymphoma
  7. PREDNISONE [Suspect]
     Active Substance: PREDNISONE
     Indication: Chemotherapy
     Dosage: MATERNAL CYCLICAL THERAPY
     Route: 064
  8. PREDNISONE [Suspect]
     Active Substance: PREDNISONE
     Indication: Diffuse large B-cell lymphoma
  9. VINCRISTINE [Suspect]
     Active Substance: VINCRISTINE
     Indication: Chemotherapy
     Dosage: MATERNAL CYCLICAL THERAPY
     Route: 064
  10. VINCRISTINE [Suspect]
     Active Substance: VINCRISTINE
     Indication: Diffuse large B-cell lymphoma

REACTIONS (6)
  - Maternal exposure during pregnancy [Fatal]
  - Sepsis neonatal [Fatal]
  - Neonatal respiratory failure [Fatal]
  - Circulatory failure neonatal [Fatal]
  - Premature baby [Unknown]
  - Neonatal respiratory distress syndrome [Unknown]
